FAERS Safety Report 5331124-2 (Version None)
Quarter: 2007Q2

REPORT INFORMATION
  Report Type: 
  Country: None (occurrence: None)
  Receive Date: 20070522
  Receipt Date: 20070510
  Transmission Date: 20071010
  Serious: Yes (Death, Hospitalization)
  Sender: FDA-Public Use
  Company Number: FR-AVENTIS-200711625FR

PATIENT
  Age: 22 Year
  Sex: Male

DRUGS (6)
  1. IMOVANE [Suspect]
     Route: 048
     Dates: start: 20070127, end: 20070207
  2. DEPAKENE [Suspect]
     Dates: start: 20070111, end: 20070215
  3. DI-HYDAN [Suspect]
     Dates: start: 20070111, end: 20070208
  4. FORTUM                             /00559702/ [Suspect]
     Route: 042
     Dates: start: 20070130, end: 20070206
  5. LOVENOX [Suspect]
     Route: 058
     Dates: start: 20070118, end: 20070215
  6. FORLAX [Suspect]
     Dates: start: 20070128, end: 20070207

REACTIONS (1)
  - TOXIC EPIDERMAL NECROLYSIS [None]
